FAERS Safety Report 14613928 (Version 1)
Quarter: 2018Q1

REPORT INFORMATION
  Report Type: Spontaneous
  Country: US (occurrence: US)
  Receive Date: 20180308
  Receipt Date: 20180308
  Transmission Date: 20180509
  Serious: Yes (Hospitalization)
  Sender: FDA-Public Use
  Company Number: US-PERRIGO-17US032160

PATIENT
  Age: 32 Year
  Sex: Male

DRUGS (3)
  1. CALCIUM CARBONATE PEPPERMINT CHEWABLE 500 MG 485 [Interacting]
     Active Substance: CALCIUM CARBONATE
     Indication: MINERAL SUPPLEMENTATION
     Dosage: 3750 MG, TID
     Route: 048
  2. CALCITRIOL. [Concomitant]
     Active Substance: CALCITRIOL
     Indication: MINERAL SUPPLEMENTATION
     Dosage: 2-4 MCG/DAY
     Route: 048
  3. PANTOPRAZOLE [Suspect]
     Active Substance: PANTOPRAZOLE
     Indication: GASTROOESOPHAGEAL REFLUX DISEASE
     Dosage: 40 MG, QD
     Route: 048

REACTIONS (2)
  - Hypocalcaemia [Recovered/Resolved]
  - Drug interaction [Unknown]
